FAERS Safety Report 10331889 (Version 1)
Quarter: 2014Q3

REPORT INFORMATION
  Report Type: Spontaneous
  Country: US (occurrence: None)
  Receive Date: 20140721
  Receipt Date: 20140721
  Transmission Date: 20150326
  Serious: Yes (Other)
  Sender: FDA-Public Use
  Company Number: None

PATIENT
  Age: 54 Year
  Sex: Female
  Weight: 112.95 kg

DRUGS (1)
  1. LOSARTAN [Suspect]
     Active Substance: LOSARTAN
     Indication: HYPERTENSION
     Dosage: 100  PO QA
     Route: 048
     Dates: start: 20140714, end: 20140716

REACTIONS (4)
  - Cough [None]
  - Nausea [None]
  - Migraine [None]
  - Hyperhidrosis [None]

NARRATIVE: CASE EVENT DATE: 20140716
